FAERS Safety Report 8443525-4 (Version None)
Quarter: 2012Q2

REPORT INFORMATION
  Report Type: 
  Country: None (occurrence: None)
  Receive Date: 20120618
  Receipt Date: 20120612
  Transmission Date: 20120825
  Serious: No
  Sender: FDA-Public Use
  Company Number: US-PFIZER INC-2012142571

PATIENT
  Sex: Female
  Weight: 74.376 kg

DRUGS (2)
  1. PREMARIN [Suspect]
     Indication: HORMONE REPLACEMENT THERAPY
     Dosage: 0.625 MG, DAILY
     Route: 048
     Dates: start: 19830101
  2. PREVACID [Concomitant]
     Indication: GASTRIC DISORDER
     Dosage: 20 MG, DAILY

REACTIONS (1)
  - ALOPECIA [None]
